FAERS Safety Report 24571263 (Version 1)
Quarter: 2024Q4

REPORT INFORMATION
  Report Type: Report from Study
  Country: US (occurrence: US)
  Receive Date: 20241101
  Receipt Date: 20241101
  Transmission Date: 20250115
  Serious: Yes (Hospitalization)
  Sender: TAKEDA
  Company Number: US-TAKEDA-2023TUS081048

PATIENT
  Sex: Male

DRUGS (6)
  1. LANADELUMAB [Suspect]
     Active Substance: LANADELUMAB
     Indication: Immune system disorder
     Dosage: 150 MILLIGRAM, Q2WEEKS
     Route: 058
     Dates: start: 20230702
  2. LANADELUMAB [Suspect]
     Active Substance: LANADELUMAB
     Indication: Immune system disorder
     Dosage: 150 MILLIGRAM, Q2WEEKS
     Route: 058
     Dates: start: 20230702
  3. LANADELUMAB [Suspect]
     Active Substance: LANADELUMAB
     Indication: Immune system disorder
     Dosage: 150 MILLIGRAM, Q2WEEKS
     Route: 058
     Dates: start: 20230702
  4. LANADELUMAB [Suspect]
     Active Substance: LANADELUMAB
     Dosage: 150 MILLIGRAM, Q2WEEKS
     Route: 058
     Dates: start: 202307
  5. LANADELUMAB [Suspect]
     Active Substance: LANADELUMAB
     Dosage: 150 MILLIGRAM, Q2WEEKS
     Route: 058
     Dates: start: 202307
  6. LANADELUMAB [Suspect]
     Active Substance: LANADELUMAB
     Dosage: 150 MILLIGRAM, Q2WEEKS
     Route: 058
     Dates: start: 202307

REACTIONS (5)
  - Weight increased [Unknown]
  - Hereditary angioedema [Recovered/Resolved]
  - Weight decreased [Unknown]
  - Coronavirus infection [Unknown]
  - Upper respiratory tract infection [Unknown]
